FAERS Safety Report 7045759-2 (Version None)
Quarter: 2010Q4

REPORT INFORMATION
  Report Type: 
  Country: None (occurrence: None)
  Receive Date: 20101014
  Receipt Date: 20101012
  Transmission Date: 20110411
  Serious: Yes (Death)
  Sender: FDA-Public Use
  Company Number: CA-B.I. PHARMACEUTICALS,INC./RIDGEFIELD-2010-CN-00639CN

PATIENT
  Sex: Female

DRUGS (5)
  1. CATAPRES [Suspect]
     Indication: PAIN MANAGEMENT
     Route: 008
  2. METHADONE [Concomitant]
  3. PROPOFOL [Concomitant]
     Indication: INSOMNIA
  4. BUPIVACAINE HCL [Concomitant]
     Indication: PAIN MANAGEMENT
     Route: 008
  5. MORPHINE [Concomitant]
     Indication: PAIN MANAGEMENT
     Route: 008

REACTIONS (1)
  - LUNG NEOPLASM MALIGNANT [None]
